FAERS Safety Report 6422268-2 (Version None)
Quarter: 2009Q4

REPORT INFORMATION
  Report Type: 
  Country: None (occurrence: None)
  Receive Date: 20091028
  Receipt Date: 20091021
  Transmission Date: 20100525
  Serious: Yes (Disabling)
  Sender: FDA-Public Use
  Company Number: 411455

PATIENT
  Sex: Female

DRUGS (1)
  1. MARCAINE [Suspect]
     Indication: ANALGESIC THERAPY
     Dosage: 300CC, CONTINUOUS, INJECTION
     Route: 042
     Dates: start: 20031219, end: 20030101

REACTIONS (6)
  - CHONDROLYSIS [None]
  - ECONOMIC PROBLEM [None]
  - INJECTION SITE REACTION [None]
  - MOVEMENT DISORDER [None]
  - MUSCULOSKELETAL DISCOMFORT [None]
  - MUSCULOSKELETAL PAIN [None]
